FAERS Safety Report 13138946 (Version 1)
Quarter: 2017Q1

REPORT INFORMATION
  Report Type: Spontaneous
  Country: US (occurrence: US)
  Receive Date: 20170123
  Receipt Date: 20170123
  Transmission Date: 20170428
  Serious: No
  Sender: FDA-Public Use
  Company Number: US-PFIZER INC-2017026897

PATIENT
  Age: 56 Year
  Sex: Female

DRUGS (1)
  1. IBRANCE [Suspect]
     Active Substance: PALBOCICLIB
     Dosage: 125 MG, CYCLIC (Q DAY X 21, 7 DAYS OFF)
     Dates: start: 20161124

REACTIONS (3)
  - Urinary tract infection [Unknown]
  - Drug hypersensitivity [Unknown]
  - Peripheral swelling [Unknown]
